FAERS Safety Report 23056250 (Version 1)
Quarter: 2023Q4

REPORT INFORMATION
  Report Type: Other
  Country: None (occurrence: NL)
  Receive Date: 20231011
  Receipt Date: 20231011
  Transmission Date: 20240109
  Serious: Yes (Other)
  Sender: FDA-Public Use
  Company Number: NL-Nova Laboratories Limited-2146978

PATIENT
  Age: 17 Year

DRUGS (19)
  1. PURIXAN [Suspect]
     Active Substance: MERCAPTOPURINE
     Indication: Acute lymphocytic leukaemia
     Route: 048
  2. PREDNISOLONE [Suspect]
     Active Substance: PREDNISOLONE
  3. DEXAMETHASONE [Suspect]
     Active Substance: DEXAMETHASONE
     Route: 048
  4. ASPARAGINASE [Suspect]
     Active Substance: ASPARAGINASE
     Route: 042
  5. CYCLOPHOSPHAMIDE [Suspect]
     Active Substance: CYCLOPHOSPHAMIDE
     Route: 042
  6. CYTARABINE [Suspect]
     Active Substance: CYTARABINE
     Route: 042
  7. CYTARABINE [Suspect]
     Active Substance: CYTARABINE
     Route: 042
  8. METHOTREXATE [Suspect]
     Active Substance: METHOTREXATE
     Route: 037
  9. METHOTREXATE [Suspect]
     Active Substance: METHOTREXATE
     Route: 048
  10. METHOTREXATE [Suspect]
     Active Substance: METHOTREXATE
     Route: 042
  11. METHOTREXATE [Suspect]
     Active Substance: METHOTREXATE
     Route: 042
  12. ETOPOSIDE [Suspect]
     Active Substance: ETOPOSIDE
     Route: 042
  13. VINCRISTINE [Suspect]
     Active Substance: VINCRISTINE
     Route: 042
  14. THIOGUANINE [Suspect]
     Active Substance: THIOGUANINE
     Route: 048
  15. DAUNORUBICIN [Suspect]
     Active Substance: DAUNORUBICIN
     Route: 042
  16. DOXORUBICIN [Suspect]
     Active Substance: DOXORUBICIN
     Route: 042
  17. IDARUBICIN [Suspect]
     Active Substance: IDARUBICIN
     Route: 042
  18. MITOXANTRONE [Suspect]
     Active Substance: MITOXANTRONE HYDROCHLORIDE
     Route: 042
  19. FLUDARABINE [Suspect]
     Active Substance: FLUDARABINE PHOSPHATE
     Route: 042

REACTIONS (2)
  - Neurotoxicity [Unknown]
  - Hepatotoxicity [Unknown]
